FAERS Safety Report 15030460 (Version 1)
Quarter: 2018Q2

REPORT INFORMATION
  Report Type: Spontaneous
  Country: ES (occurrence: ES)
  Receive Date: 20180619
  Receipt Date: 20180619
  Transmission Date: 20180711
  Serious: Yes (Death, Hospitalization)
  Sender: FDA-Public Use
  Company Number: ES-TEVA-2018-ES-908777

PATIENT
  Age: 40 Year
  Sex: Male
  Weight: 140 kg

DRUGS (2)
  1. PREDNISONA (886A) [Suspect]
     Active Substance: PREDNISONE
     Indication: SELF-MEDICATION
     Dosage: 60 MILLIGRAM DAILY;
     Route: 048
     Dates: start: 2007
  2. PREDNISONA (886A) [Concomitant]
     Active Substance: PREDNISONE
     Indication: SELF-MEDICATION
     Route: 048
     Dates: start: 20171110, end: 20171110

REACTIONS (2)
  - Cardiogenic shock [Fatal]
  - Myocarditis [Fatal]

NARRATIVE: CASE EVENT DATE: 20171112
